FAERS Safety Report 7723729-6 (Version None)
Quarter: 2011Q3

REPORT INFORMATION
  Report Type: 
  Country: None (occurrence: None)
  Receive Date: 20110901
  Receipt Date: 20110822
  Transmission Date: 20111222
  Serious: Yes (Other)
  Sender: FDA-Public Use
  Company Number: DE-GENZYME-MOZO-1000567

PATIENT

DRUGS (10)
  1. MOZOBIL [Suspect]
     Indication: GERM CELL CANCER
  2. NEUPOGEN [Concomitant]
     Indication: GERM CELL CANCER
  3. ETOPOSIDE [Concomitant]
     Indication: HAEMATOPOIETIC STEM CELL MOBILISATION
     Route: 065
  4. NEUPOGEN [Concomitant]
     Indication: HAEMATOPOIETIC STEM CELL MOBILISATION
     Route: 065
  5. CISPLATIN [Concomitant]
     Indication: HAEMATOPOIETIC STEM CELL MOBILISATION
     Route: 065
  6. CISPLATIN [Concomitant]
     Indication: GERM CELL CANCER
  7. ETOPOSIDE [Concomitant]
     Indication: GERM CELL CANCER
  8. MOZOBIL [Suspect]
     Indication: HAEMATOPOIETIC STEM CELL MOBILISATION
     Dosage: 240 MCG/KG, UNK
     Route: 058
  9. IFOSFAMIDE [Concomitant]
     Indication: HAEMATOPOIETIC STEM CELL MOBILISATION
     Route: 065
  10. IFOSFAMIDE [Concomitant]
     Indication: GERM CELL CANCER

REACTIONS (1)
  - GERM CELL CANCER [None]
